FAERS Safety Report 11060659 (Version 2)
Quarter: 2015Q2

REPORT INFORMATION
  Report Type: Report from Study
  Country: BR (occurrence: BR)
  Receive Date: 20150423
  Receipt Date: 20150506
  Transmission Date: 20150821
  Serious: Yes (Hospitalization)
  Sender: FDA-Public Use
  Company Number: PHHY2015BR044072

PATIENT
  Age: 69 Year
  Sex: Male
  Weight: 58 kg

DRUGS (2)
  1. TRILEPTAL [Suspect]
     Active Substance: OXCARBAZEPINE
     Indication: TRIGEMINAL NERVE DISORDER
     Dosage: 300 MG, UNK
     Route: 065
  2. TRILEPTAL [Suspect]
     Active Substance: OXCARBAZEPINE
     Indication: SEIZURE
     Dosage: 300 MG, BID (2 TABLETS/ DAY MORNING AND NIGHT)
     Route: 065
     Dates: start: 2012

REACTIONS (3)
  - Accident [Recovering/Resolving]
  - Head injury [Recovering/Resolving]
  - Lower limb fracture [Recovering/Resolving]

NARRATIVE: CASE EVENT DATE: 20150213
